FAERS Safety Report 5011594-X (Version None)
Quarter: 2006Q2

REPORT INFORMATION
  Report Type: 
  Country: None (occurrence: None)
  Receive Date: 20060404
  Receipt Date: 20051103
  Transmission Date: 20061013
  Serious: No
  Sender: FDA-Public Use
  Company Number: USA0511112684

PATIENT
  Sex: Female

DRUGS (2)
  1. CYMBALTA [Suspect]
     Indication: VESTIBULITIS
     Dosage: 60 MG, ORAL
     Route: 048
     Dates: start: 20050701
  2. CONTRACEPTIVE PILL (ORAL CONTRACEPTIVE) [Concomitant]

REACTIONS (2)
  - DISTURBANCE IN SEXUAL AROUSAL [None]
  - INADEQUATE LUBRICATION [None]
